FAERS Safety Report 12562198 (Version 2)
Quarter: 2019Q1

REPORT INFORMATION
  Report Type: Spontaneous
  Country: JP (occurrence: JP)
  Receive Date: 20160715
  Receipt Date: 20190328
  Transmission Date: 20190417
  Serious: Yes (Other)
  Sender: FDA-Public Use
  Company Number: JP-009507513-1607JPN006941

PATIENT
  Age: 55 Year
  Sex: Female
  Weight: 64 kg

DRUGS (13)
  1. SODIUM FERROUS CITRATE [Concomitant]
     Active Substance: SODIUM FERROUS CITRATE
     Indication: IRON DEFICIENCY ANAEMIA
     Dosage: 1 UNK
     Route: 048
     Dates: end: 20150524
  2. SODIUM FERROUS CITRATE [Concomitant]
     Active Substance: SODIUM FERROUS CITRATE
     Dosage: 1 DOSAGE FORM, QD
     Route: 048
     Dates: start: 20150930, end: 20160105
  3. MICARDIS [Concomitant]
     Active Substance: TELMISARTAN
     Dosage: UNK
     Route: 065
     Dates: start: 20160106, end: 20161019
  4. SAMSCA [Suspect]
     Active Substance: TOLVAPTAN
     Dosage: 15 MILLIGRAM
     Route: 048
     Dates: start: 20150526, end: 20150630
  5. SAMSCA [Suspect]
     Active Substance: TOLVAPTAN
     Dosage: 15 MILLIGRAM
     Route: 048
     Dates: start: 20151028, end: 20160105
  6. AMLODIPINE BESILATE [Concomitant]
     Active Substance: AMLODIPINE BESYLATE
     Dosage: UNK
     Route: 048
     Dates: start: 20161222, end: 20170118
  7. SAMSCA [Suspect]
     Active Substance: TOLVAPTAN
     Dosage: 45 MILLIGRAM
     Route: 048
     Dates: start: 20151028, end: 20160105
  8. SAMSCA [Suspect]
     Active Substance: TOLVAPTAN
     Dosage: UNK
     Route: 048
     Dates: start: 20160526, end: 20170215
  9. NU-LOTAN [Suspect]
     Active Substance: LOSARTAN POTASSIUM
     Dosage: 25 MILLIGRAM
     Route: 048
     Dates: start: 20150930
  10. SAMSCA [Suspect]
     Active Substance: TOLVAPTAN
     Dosage: 15 MILLIGRAM
     Route: 048
     Dates: start: 20150525
  11. SAMSCA [Suspect]
     Active Substance: TOLVAPTAN
     Dosage: 45 MILLIGRAM
     Route: 048
     Dates: start: 20150526, end: 20150630
  12. SAMSCA [Suspect]
     Active Substance: TOLVAPTAN
     Indication: CONGENITAL CYSTIC KIDNEY DISEASE
     Dosage: 30 MILLIGRAM
     Route: 048
     Dates: start: 20150701, end: 20151027
  13. FUROSEMIDE. [Concomitant]
     Active Substance: FUROSEMIDE
     Indication: OEDEMA
     Dosage: UNK
     Route: 048

REACTIONS (5)
  - Gamma-glutamyltransferase increased [Recovered/Resolved]
  - Drug-induced liver injury [Recovered/Resolved]
  - Aspartate aminotransferase increased [Recovered/Resolved]
  - Alanine aminotransferase increased [Recovered/Resolved]
  - Hepatic function abnormal [Recovered/Resolved]

NARRATIVE: CASE EVENT DATE: 20151028
